FAERS Safety Report 9518918 (Version 1)
Quarter: 2013Q3

REPORT INFORMATION
  Report Type: Spontaneous
  Country: US (occurrence: None)
  Receive Date: 20130910
  Receipt Date: 20130910
  Transmission Date: 20140515
  Serious: Yes (Hospitalization, Other)
  Sender: FDA-Public Use
  Company Number: None

PATIENT
  Sex: Male

DRUGS (1)
  1. CEPHALEXIN [Suspect]
     Dates: start: 20130822, end: 20130905

REACTIONS (14)
  - Hot flush [None]
  - Hyperhidrosis [None]
  - Dizziness [None]
  - Amnesia [None]
  - Loss of consciousness [None]
  - Vomiting [None]
  - Cognitive disorder [None]
  - Heart rate irregular [None]
  - Chromaturia [None]
  - Mydriasis [None]
  - Retching [None]
  - Product odour abnormal [None]
  - Activities of daily living impaired [None]
  - Pyrexia [None]
